FAERS Safety Report 4527406-4 (Version None)
Quarter: 2004Q4

REPORT INFORMATION
  Report Type: 
  Country: None (occurrence: None)
  Receive Date: 20041130
  Receipt Date: 20040902
  Transmission Date: 20050328
  Serious: No
  Sender: FDA-Public Use
  Company Number: WAES 0409USA00375

PATIENT
  Sex: Female

DRUGS (7)
  1. ZETIA [Suspect]
     Indication: BLOOD CHOLESTEROL INCREASED
     Dosage: 10 MG/DAILY/PO
     Route: 048
     Dates: start: 20040201
  2. CARDURA [Concomitant]
  3. DETROL [Concomitant]
  4. GLUCOPHAGE [Concomitant]
  5. SYNTHROID [Concomitant]
  6. ZESTRIL [Concomitant]
  7. INDAPAMIDE [Concomitant]

REACTIONS (1)
  - BLOOD GLUCOSE INCREASED [None]
